FAERS Safety Report 12416948 (Version 1)
Quarter: 2016Q2

REPORT INFORMATION
  Report Type: Report from Study
  Country: HU (occurrence: HU)
  Receive Date: 20160530
  Receipt Date: 20160530
  Transmission Date: 20160815
  Serious: Yes (Other)
  Sender: FDA-Public Use
  Company Number: HU-JNJFOC-20131010449

PATIENT
  Age: 36 Year
  Sex: Male

DRUGS (4)
  1. STELARA [Suspect]
     Active Substance: USTEKINUMAB
     Indication: PSORIASIS
     Route: 058
     Dates: start: 20131203
  2. STELARA [Suspect]
     Active Substance: USTEKINUMAB
     Indication: PSORIASIS
     Route: 058
     Dates: start: 20140225
  3. STELARA [Suspect]
     Active Substance: USTEKINUMAB
     Indication: PSORIASIS
     Route: 058
     Dates: start: 20130910
  4. STELARA [Suspect]
     Active Substance: USTEKINUMAB
     Indication: PSORIASIS
     Route: 058
     Dates: start: 20130816

REACTIONS (12)
  - Oropharyngeal pain [Unknown]
  - Cough [Unknown]
  - Choking [Unknown]
  - Diarrhoea [Recovered/Resolved]
  - Cataract [Unknown]
  - Exposure via father [Unknown]
  - Nasopharyngitis [Unknown]
  - Pain in extremity [Unknown]
  - Arthralgia [Unknown]
  - Psoriasis [Unknown]
  - Retinal operation [Unknown]
  - Headache [Unknown]

NARRATIVE: CASE EVENT DATE: 2013
